FAERS Safety Report 6779720-X (Version None)
Quarter: 2010Q2

REPORT INFORMATION
  Report Type: 
  Country: None (occurrence: None)
  Receive Date: 20100618
  Receipt Date: 20100609
  Transmission Date: 20101027
  Serious: Yes (Hospitalization)
  Sender: FDA-Public Use
  Company Number: PHHO2010FR08839

PATIENT
  Sex: Female

DRUGS (4)
  1. STI571/CGP57148B T35717+CAPS [Suspect]
     Indication: CHRONIC MYELOID LEUKAEMIA
     Dosage: 400 MG, QD
     Route: 048
     Dates: start: 20051222, end: 20091117
  2. PEGASYS [Concomitant]
     Dosage: UNK
     Dates: start: 20051025
  3. ACETAMINOPHEN [Concomitant]
  4. LEVONORGESTREL AND ETHINYL ESTRADIOL [Concomitant]

REACTIONS (7)
  - ALANINE AMINOTRANSFERASE INCREASED [None]
  - ASPARTATE AMINOTRANSFERASE INCREASED [None]
  - BREAST CANCER [None]
  - CUTANEOUS LUPUS ERYTHEMATOSUS [None]
  - CYTOLYTIC HEPATITIS [None]
  - NEOPLASM MALIGNANT [None]
  - SURGERY [None]
